FAERS Safety Report 25014154 (Version 2)
Quarter: 2025Q1

REPORT INFORMATION
  Report Type: Spontaneous
  Country: AU (occurrence: AU)
  Receive Date: 20250226
  Receipt Date: 20250304
  Transmission Date: 20250409
  Serious: Yes (Other)
  Sender: PFIZER
  Company Number: AU-PFM-2025-00803

PATIENT
  Age: 79 Year
  Sex: Female
  Weight: 61 kg

DRUGS (3)
  1. BRAFTOVI [Suspect]
     Active Substance: ENCORAFENIB
     Route: 065
     Dates: start: 2025
  2. BRAFTOVI [Suspect]
     Active Substance: ENCORAFENIB
     Route: 065
  3. MEKTOVI [Suspect]
     Active Substance: BINIMETINIB
     Route: 065
     Dates: start: 2025

REACTIONS (3)
  - Electrocardiogram QT prolonged [Recovered/Resolved]
  - Product use issue [Unknown]
  - Off label use [Unknown]

NARRATIVE: CASE EVENT DATE: 20250101
